FAERS Safety Report 8791591 (Version 1)
Quarter: 2012Q4

REPORT INFORMATION
  Report Type: 
  Country: TR (occurrence: TR)
  Receive Date: 20120918
  Receipt Date: 20120918
  Transmission Date: 20130627
  Serious: Yes (Other)
  Sender: FDA-Public Use
  Company Number: PHHY2012TR079894

PATIENT
  Age: 11 Year
  Sex: Female

DRUGS (1)
  1. CO-TRIMOXAZOLE [Suspect]
     Indication: ANTIBIOTIC PROPHYLAXIS

REACTIONS (2)
  - Lipidosis [Unknown]
  - Proteinuria [Unknown]
